FAERS Safety Report 7544092-X (Version None)
Quarter: 2011Q2

REPORT INFORMATION
  Report Type: 
  Country: None (occurrence: None)
  Receive Date: 20110613
  Receipt Date: 20051025
  Transmission Date: 20111010
  Serious: Yes (Death, Hospitalization, Other)
  Sender: FDA-Public Use
  Company Number: PHMT2005CA00447

PATIENT
  Sex: Male

DRUGS (14)
  1. SANDOSTATIN LAR [Suspect]
     Indication: ANGIODYSPLASIA
     Dosage: 20 MG, QW4
     Dates: start: 20040120
  2. AVELOX [Concomitant]
     Dosage: UNK
  3. DOXAZOSIN MESYLATE [Concomitant]
     Dosage: UNK
  4. NITROGLYCERIN SPRAY [Concomitant]
     Dosage: UNK
  5. NORVASC [Concomitant]
     Dosage: UNK
  6. PANTOLOC ^SOLVAY^ [Concomitant]
     Dosage: UNK
  7. IPRATROPIUM W/LEVOSALBUTAMOL [Concomitant]
     Dosage: UNK
  8. SENOKOT [Concomitant]
     Dosage: UNK
  9. ATIVAN [Concomitant]
     Dosage: UNK
  10. COLACE [Concomitant]
     Dosage: UNK
  11. FLOVENT [Concomitant]
     Dosage: UNK
  12. NOVOSPIROTON [Concomitant]
     Dosage: UNK
  13. PREDNISONE [Concomitant]
     Dosage: UNK
  14. SYNTHROID [Concomitant]
     Dosage: UNK

REACTIONS (2)
  - CARDIO-RESPIRATORY ARREST [None]
  - PLATELET COUNT DECREASED [None]
